FAERS Safety Report 8150115-X (Version None)
Quarter: 2012Q1

REPORT INFORMATION
  Report Type: 
  Country: None (occurrence: None)
  Receive Date: 20120220
  Receipt Date: 20120208
  Transmission Date: 20120608
  Serious: Yes (Hospitalization, Other)
  Sender: FDA-Public Use
  Company Number: US-BIOGENIDEC-2010BI002974

PATIENT
  Age: 52 Year
  Sex: Female

DRUGS (2)
  1. AVONEX [Suspect]
     Indication: MULTIPLE SCLEROSIS
     Route: 030
     Dates: start: 19961001, end: 20060531
  2. AVONEX [Suspect]
     Route: 030
     Dates: start: 20071020

REACTIONS (6)
  - SPLENIC RUPTURE [None]
  - COMA [None]
  - ROAD TRAFFIC ACCIDENT [None]
  - AORTIC ANEURYSM [None]
  - RESPIRATORY FAILURE [None]
  - CONCUSSION [None]
